FAERS Safety Report 13704619 (Version 1)
Quarter: 2017Q2

REPORT INFORMATION
  Report Type: Spontaneous
  Country: US (occurrence: US)
  Receive Date: 20170629
  Receipt Date: 20170629
  Transmission Date: 20170830
  Serious: Yes (Hospitalization)
  Sender: FDA-Public Use
  Company Number: None

PATIENT
  Age: 72 Year
  Sex: Male
  Weight: 68 kg

DRUGS (20)
  1. DULOXETINE. [Concomitant]
     Active Substance: DULOXETINE
  2. LANTUS [Concomitant]
     Active Substance: INSULIN GLARGINE
  3. METFORMIN [Concomitant]
     Active Substance: METFORMIN HYDROCHLORIDE
  4. MODAFINIL. [Concomitant]
     Active Substance: MODAFINIL
  5. OMEPRAZOLE. [Concomitant]
     Active Substance: OMEPRAZOLE
  6. TADALAFIL [Concomitant]
     Active Substance: TADALAFIL
  7. ASPIRIN. [Concomitant]
     Active Substance: ASPIRIN
  8. CARVEDILOL. [Concomitant]
     Active Substance: CARVEDILOL
  9. GLIPIZINE ER [Concomitant]
  10. SITAGLIPTIN [Concomitant]
     Active Substance: SITAGLIPTIN
  11. AMLODIPINE [Concomitant]
     Active Substance: AMLODIPINE BESYLATE
  12. CLOPIDOGREL [Concomitant]
     Active Substance: CLOPIDOGREL BISULFATE
  13. DAPTOMYCIN. [Suspect]
     Active Substance: DAPTOMYCIN
     Indication: OSTEOMYELITIS
     Dosage: ?          OTHER DOSE: 450 MG; INTRAVENOUS (NOT OTHERWISE SPECIFIED)  ?
     Route: 042
     Dates: start: 20161104, end: 20161207
  14. BRIMONIDINE [Concomitant]
     Active Substance: BRIMONIDINE TARTRATE
  15. DORZOLAMINE-TIMOLOL [Concomitant]
  16. LOSARTAN. [Concomitant]
     Active Substance: LOSARTAN
  17. ALBUTEROL. [Concomitant]
     Active Substance: ALBUTEROL
  18. FLURICSONE/SALMETEROL [Concomitant]
  19. GABAPENTIN. [Concomitant]
     Active Substance: GABAPENTIN
  20. LIDOCAINE. [Concomitant]
     Active Substance: LIDOCAINE

REACTIONS (3)
  - Interstitial lung disease [None]
  - Respiratory failure [None]
  - Toe amputation [None]

NARRATIVE: CASE EVENT DATE: 20170118
